FAERS Safety Report 15375468 (Version 1)
Quarter: 2018Q3

REPORT INFORMATION
  Report Type: Spontaneous
  Country: US (occurrence: US)
  Receive Date: 20180912
  Receipt Date: 20180912
  Transmission Date: 20181010
  Serious: No
  Sender: FDA-Public Use
  Company Number: US-BAYER-2018-167073

PATIENT
  Age: 70 Year
  Sex: Female
  Weight: 66 kg

DRUGS (1)
  1. ALEVE [Suspect]
     Active Substance: NAPROXEN SODIUM
     Indication: PAIN
     Dosage: 2 DF, QD BEFORE BED
     Route: 048
     Dates: start: 201806, end: 20180904

REACTIONS (4)
  - Expired product administered [Unknown]
  - Insomnia [Not Recovered/Not Resolved]
  - Incorrect drug administration duration [Unknown]
  - Drug ineffective [None]

NARRATIVE: CASE EVENT DATE: 201806
